FAERS Safety Report 12678699 (Version 1)
Quarter: 2016Q3

REPORT INFORMATION
  Report Type: Spontaneous
  Country: US (occurrence: US)
  Receive Date: 20160823
  Receipt Date: 20160823
  Transmission Date: 20161109
  Serious: Yes (Hospitalization, Other)
  Sender: FDA-Public Use
  Company Number: US-BEH-2016072885

PATIENT
  Age: 57 Year
  Sex: Female
  Weight: 47.62 kg

DRUGS (1)
  1. PRIVIGEN [Suspect]
     Active Substance: HUMAN IMMUNOGLOBULIN G
     Indication: HYPOGAMMAGLOBULINAEMIA
     Dosage: 20 MG, QMT
     Route: 042

REACTIONS (4)
  - Blood viscosity increased [Unknown]
  - Renal function test abnormal [Unknown]
  - Hemiplegia [Unknown]
  - Lymphoma [Unknown]

NARRATIVE: CASE EVENT DATE: 20160630
